FAERS Safety Report 9613238 (Version 1)
Quarter: 2013Q4

REPORT INFORMATION
  Report Type: Report from Study
  Country: JP (occurrence: JP)
  Receive Date: 20131010
  Receipt Date: 20131010
  Transmission Date: 20140711
  Serious: Yes (Disabling)
  Sender: FDA-Public Use
  Company Number: JP-GLAXOSMITHKLINE-B0928348A

PATIENT
  Age: 51 Year
  Sex: Female
  Weight: 52 kg

DRUGS (15)
  1. REVOLADE [Suspect]
     Indication: IMMUNE THROMBOCYTOPENIC PURPURA
     Route: 048
     Dates: start: 20110301, end: 20110424
  2. REVOLADE [Suspect]
     Indication: IMMUNE THROMBOCYTOPENIC PURPURA
     Route: 048
     Dates: start: 20110425, end: 20110508
  3. REVOLADE [Suspect]
     Indication: IMMUNE THROMBOCYTOPENIC PURPURA
     Route: 048
     Dates: start: 20110509, end: 20111113
  4. REVOLADE [Suspect]
     Indication: IMMUNE THROMBOCYTOPENIC PURPURA
     Route: 048
     Dates: start: 20111114, end: 20130410
  5. REVOLADE [Suspect]
     Indication: IMMUNE THROMBOCYTOPENIC PURPURA
     Route: 048
     Dates: start: 20130411
  6. PREDONINE [Concomitant]
     Indication: IMMUNE THROMBOCYTOPENIC PURPURA
     Route: 048
  7. DIOVAN [Concomitant]
     Indication: HYPERTENSION
     Route: 048
  8. PROGRAF [Concomitant]
     Indication: RHEUMATIC DISORDER
     Route: 048
  9. FOSAMAC [Concomitant]
     Route: 048
  10. THYRADIN S [Concomitant]
     Indication: HYPOTHYROIDISM
     Route: 048
  11. MYSLEE [Concomitant]
     Indication: INSOMNIA
     Route: 048
  12. HALCION [Concomitant]
     Indication: INSOMNIA
     Route: 048
  13. YODEL-S [Concomitant]
     Indication: CONSTIPATION
     Route: 048
  14. GASTER D [Concomitant]
     Route: 048
  15. BAYASPIRIN [Concomitant]
     Indication: PROPHYLAXIS
     Route: 048
     Dates: start: 20121117

REACTIONS (1)
  - Cerebral infarction [Recovering/Resolving]
